FAERS Safety Report 15795551 (Version 1)
Quarter: 2019Q1

REPORT INFORMATION
  Report Type: Spontaneous
  Country: FR (occurrence: FR)
  Receive Date: 20190107
  Receipt Date: 20190107
  Transmission Date: 20190417
  Serious: Yes (Other)
  Sender: FDA-Public Use
  Company Number: FR-ALLERGAN-1900586US

PATIENT
  Age: 46 Year
  Sex: Female

DRUGS (1)
  1. ATROPINE UNK [Suspect]
     Active Substance: ATROPINE SULFATE
     Indication: PRODUCT USED FOR UNKNOWN INDICATION
     Dosage: UNK, TID
     Route: 047
     Dates: start: 20141216, end: 20141220

REACTIONS (4)
  - Myocardial infarction [Unknown]
  - Visual impairment [Unknown]
  - Eye discharge [Unknown]
  - Vision blurred [Unknown]

NARRATIVE: CASE EVENT DATE: 201501
